FAERS Safety Report 5546737-2 (Version None)
Quarter: 2007Q4

REPORT INFORMATION
  Report Type: 
  Country: None (occurrence: None)
  Receive Date: 20071123
  Receipt Date: 20070206
  Transmission Date: 20080405
  Serious: Yes (Other)
  Sender: FDA-Public Use
  Company Number: US-JNJFOC-20061204628

PATIENT
  Age: 47 Year
  Sex: Male
  Weight: 81.6475 kg

DRUGS (5)
  1. LEVAQUIN [Suspect]
     Indication: UPPER RESPIRATORY TRACT INFECTION
     Dosage: 500 MG, ORAL
     Route: 048
     Dates: start: 20060101
  2. TOPROL (METOPROLOL SUCCINATE) UNSPECIFIED [Concomitant]
  3. MONOPRIL (FOSINOPRIL SODIUM) UNSPECIFIED [Concomitant]
  4. PRAVACHOL (PRAVASTATIN SODIUM) UNSPECIFIED [Concomitant]
  5. COUMADIN [Concomitant]

REACTIONS (1)
  - MUSCLE RUPTURE [None]
